FAERS Safety Report 8592366-6 (Version None)
Quarter: 2012Q3

REPORT INFORMATION
  Report Type: 
  Country: None (occurrence: None)
  Receive Date: 20120814
  Receipt Date: 20120806
  Transmission Date: 20120928
  Serious: Yes (Hospitalization)
  Sender: FDA-Public Use
  Company Number: BR-B.I. PHARMACEUTICALS,INC./RIDGEFIELD-2012-BR-00829BR

PATIENT
  Sex: Male

DRUGS (4)
  1. UNITIDAZIN [Concomitant]
     Indication: SCHIZOPHRENIA
  2. PRADAXA [Suspect]
     Indication: DEEP VEIN THROMBOSIS
     Dosage: 220 MG
     Route: 048
     Dates: start: 20120702
  3. HALDOL [Concomitant]
     Indication: PSYCHOTIC DISORDER
  4. AKINETON [Concomitant]
     Indication: SCHIZOPHRENIA

REACTIONS (4)
  - FRACTURE DISPLACEMENT [None]
  - URINE POTASSIUM DECREASED [None]
  - ANAEMIA [None]
  - SYNCOPE [None]
